FAERS Safety Report 17572989 (Version 1)
Quarter: 2020Q1

REPORT INFORMATION
  Report Type: Spontaneous
  Country: US (occurrence: US)
  Receive Date: 20200323
  Receipt Date: 20200323
  Transmission Date: 20200409
  Serious: Yes (Other)
  Sender: FDA-Public Use
  Company Number: US-BAYER-2020-046640

PATIENT
  Sex: Female

DRUGS (1)
  1. BAYER WOMENS [Suspect]
     Active Substance: ASPIRIN\CALCIUM CARBONATE
     Dosage: 1 DF, QD
     Route: 048
     Dates: start: 2010, end: 2020

REACTIONS (2)
  - Drug dependence [Unknown]
  - Intentional product use issue [Unknown]
